FAERS Safety Report 10263642 (Version 1)
Quarter: 2014Q2

REPORT INFORMATION
  Report Type: Spontaneous
  Country: IT (occurrence: IT)
  Receive Date: 20140626
  Receipt Date: 20140626
  Transmission Date: 20141212
  Serious: Yes (Hospitalization)
  Sender: FDA-Public Use
  Company Number: IT-MYLANLABS-2014S1014740

PATIENT
  Age: 79 Year
  Sex: Female

DRUGS (1)
  1. METFORMIN [Suspect]
     Indication: DIABETES MELLITUS
     Dosage: 3000 MG DAILY
     Route: 048
     Dates: start: 20100601, end: 20140525

REACTIONS (2)
  - Renal failure acute [Not Recovered/Not Resolved]
  - Lactic acidosis [Not Recovered/Not Resolved]
